FAERS Safety Report 6956522-2 (Version None)
Quarter: 2010Q3

REPORT INFORMATION
  Report Type: 
  Country: None (occurrence: None)
  Receive Date: 20100830
  Receipt Date: 20100817
  Transmission Date: 20110219
  Serious: Yes (Other)
  Sender: FDA-Public Use
  Company Number: US-ELI_LILLY_AND_COMPANY-US201005006235

PATIENT
  Age: 68 Year
  Sex: Female

DRUGS (1)
  1. FORTEO [Suspect]
     Dosage: UNK, UNKNOWN

REACTIONS (5)
  - ARTHRALGIA [None]
  - BACK PAIN [None]
  - FLANK PAIN [None]
  - LIMB DEFORMITY [None]
  - MUSCULOSKELETAL PAIN [None]
